FAERS Safety Report 8386200-7 (Version None)
Quarter: 2012Q2

REPORT INFORMATION
  Report Type: 
  Country: None (occurrence: None)
  Receive Date: 20120525
  Receipt Date: 20120515
  Transmission Date: 20120825
  Serious: Yes (Death, Life-Threatening, Hospitalization, Other)
  Sender: FDA-Public Use
  Company Number: JP-PFIZER INC-2011048183

PATIENT
  Age: 67 Year
  Sex: Male
  Weight: 42 kg

DRUGS (12)
  1. VANCOMYCIN [Concomitant]
     Dosage: UNK
     Dates: start: 20100806, end: 20100818
  2. IRINOTECAN HCL [Suspect]
     Indication: NON-SMALL CELL LUNG CANCER
     Dosage: 84 MG (60 MG/M2)
     Route: 041
     Dates: start: 20100707, end: 20100707
  3. CARBENIN [Concomitant]
     Dosage: UNK
     Dates: start: 20100821, end: 20100825
  4. CISPLATIN [Suspect]
     Dosage: 84 MG, 1X/DAY
     Route: 041
     Dates: start: 20100730, end: 20100730
  5. ZOSYN [Concomitant]
     Dosage: UNK
     Dates: start: 20100807, end: 20100820
  6. AMPICILLIN [Concomitant]
     Dosage: UNK
     Dates: start: 20100826, end: 20100913
  7. CISPLATIN [Suspect]
     Indication: NON-SMALL CELL LUNG CANCER
     Dosage: 84 MG (60 MG/M2)
     Route: 041
     Dates: start: 20100707, end: 20100707
  8. LOPERAMIDE HCL [Concomitant]
     Indication: DIARRHOEA
     Route: 048
  9. MEROPENEM [Concomitant]
     Dosage: UNK
     Dates: start: 20100806, end: 20100806
  10. IRINOTECAN HCL [Suspect]
     Dosage: 84 MG, 1X/DAY
     Route: 041
     Dates: start: 20100714, end: 20100714
  11. IRINOTECAN HCL [Suspect]
     Dosage: 70 MG, 1X/DAY
     Route: 041
     Dates: start: 20100730, end: 20100730
  12. GRAN [Concomitant]
     Dosage: UNK
     Dates: start: 20100723, end: 20100724

REACTIONS (6)
  - DISEASE PROGRESSION [None]
  - NEUTROPENIA [None]
  - HAEMOGLOBIN DECREASED [None]
  - PYREXIA [None]
  - NON-SMALL CELL LUNG CANCER [None]
  - PNEUMONIA [None]
